FAERS Safety Report 24540709 (Version 10)
Quarter: 2025Q1

REPORT INFORMATION
  Report Type: Report from Study
  Country: CN (occurrence: CN)
  Receive Date: 20241023
  Receipt Date: 20250221
  Transmission Date: 20250409
  Serious: Yes (Hospitalization)
  Sender: EISAI
  Company Number: CN-Eisai-EC-2024-177165

PATIENT
  Age: 48 Year
  Sex: Female
  Weight: 63 kg

DRUGS (6)
  1. ERIBULIN [Suspect]
     Active Substance: ERIBULIN
     Indication: Breast cancer metastatic
     Dates: start: 20240930, end: 20241104
  2. ERIBULIN [Suspect]
     Active Substance: ERIBULIN
     Dates: start: 20241121
  3. CAPECITABINE [Suspect]
     Active Substance: CAPECITABINE
     Indication: Breast cancer metastatic
     Dosage: D1-D14/3 WEEKS
     Dates: start: 20240930
  4. DORZAGLIATIN [Concomitant]
     Active Substance: DORZAGLIATIN
     Indication: Type 2 diabetes mellitus
     Dates: start: 20241005, end: 20241023
  5. INSULIN ASPART\INSULIN DEGLUDEC [Concomitant]
     Active Substance: INSULIN ASPART\INSULIN DEGLUDEC
     Indication: Type 2 diabetes mellitus
     Dates: start: 20241011, end: 20241107
  6. GLUTATHIONE [Concomitant]
     Active Substance: GLUTATHIONE
     Dates: start: 20241005, end: 20241020

REACTIONS (3)
  - Hepatic failure [Recovered/Resolved]
  - Neutrophil count decreased [Recovered/Resolved]
  - Platelet count decreased [Recovered/Resolved]

NARRATIVE: CASE EVENT DATE: 20241020
